FAERS Safety Report 16470810 (Version 1)
Quarter: 2019Q2

REPORT INFORMATION
  Report Type: Spontaneous
  Country: US (occurrence: US)
  Receive Date: 20190514
  Receipt Date: 20190514
  Transmission Date: 20190711
  Serious: No
  Sender: FDA-Public Use
  Company Number: None

PATIENT
  Age: 35 Year

DRUGS (3)
  1. MANMATH RAS [Suspect]
     Active Substance: HERBALS\MINERALS\VITAMINS
  2. PUSPADHANWA RAS [Suspect]
     Active Substance: HERBALS
  3. SHUKRAMATRIKA BATI [Suspect]
     Active Substance: HERBALS

REACTIONS (3)
  - Abdominal pain [None]
  - Product contamination physical [None]
  - Blood lead increased [None]
